FAERS Safety Report 23820482 (Version 1)
Quarter: 2024Q2

REPORT INFORMATION
  Report Type: Other
  Country: NL (occurrence: NL)
  Receive Date: 20240506
  Receipt Date: 20240506
  Transmission Date: 20240716
  Serious: Yes (Hospitalization)
  Sender: FDA-Public Use
  Company Number: NL-Bion-012991

PATIENT
  Age: 90 Year
  Sex: Female

DRUGS (8)
  1. VALPROIC ACID [Suspect]
     Active Substance: VALPROIC ACID
     Indication: Generalised tonic-clonic seizure
     Route: 042
  2. PHENPROCOUMON [Concomitant]
     Active Substance: PHENPROCOUMON
     Indication: Atrial fibrillation
     Dosage: PER 48 HOURS
  3. FUROSEMIDE [Concomitant]
     Active Substance: FUROSEMIDE
     Indication: Product used for unknown indication
  4. HYDROCHLOROTHIAZIDE WITH TRIAMTEREN [Concomitant]
     Indication: Product used for unknown indication
  5. OLANZAPINE [Concomitant]
     Active Substance: OLANZAPINE
     Indication: Product used for unknown indication
  6. OXAZEPAM [Concomitant]
     Active Substance: OXAZEPAM
     Indication: Product used for unknown indication
  7. VALPROIC ACID [Suspect]
     Active Substance: VALPROIC ACID
     Indication: Generalised tonic-clonic seizure
     Route: 048
  8. VALPROIC ACID [Suspect]
     Active Substance: VALPROIC ACID
     Indication: Generalised tonic-clonic seizure
     Route: 042

REACTIONS (3)
  - Peptic ulcer haemorrhage [Unknown]
  - Accidental exposure to product [Unknown]
  - Drug interaction [Unknown]
